FAERS Safety Report 14951038 (Version 1)
Quarter: 2018Q2

REPORT INFORMATION
  Report Type: Spontaneous
  Country: ES (occurrence: ES)
  Receive Date: 20180530
  Receipt Date: 20180530
  Transmission Date: 20180711
  Serious: Yes (Hospitalization, Other)
  Sender: FDA-Public Use
  Company Number: ES-AMGEN-ESPSP2018071614

PATIENT
  Age: 77 Year
  Sex: Female
  Weight: 65 kg

DRUGS (6)
  1. HYDREA [Suspect]
     Active Substance: HYDROXYUREA
     Indication: CHRONIC MYELOMONOCYTIC LEUKAEMIA
     Dosage: 500 MG, QD
     Route: 048
     Dates: start: 20170620
  2. FERROGLYCINE SULFATE [Concomitant]
     Active Substance: FERROGLYCINE SULFATE
     Indication: IRON DEFICIENCY ANAEMIA
     Dosage: 105 MG, QD
     Route: 048
     Dates: start: 20171214, end: 20180104
  3. ARANESP [Suspect]
     Active Substance: DARBEPOETIN ALFA
     Indication: ANAEMIA
     Dosage: 300 MUG, QD
     Route: 058
     Dates: start: 20171214, end: 20180125
  4. EPOETIN ALFA [Suspect]
     Active Substance: ERYTHROPOIETIN
     Indication: CHRONIC MYELOMONOCYTIC LEUKAEMIA
     Dosage: 1 MG (40.000 UI), UNK
     Route: 058
     Dates: start: 20180125, end: 20180226
  5. ENANTYUM [Concomitant]
     Active Substance: DEXKETOPROFEN TROMETAMOL
     Indication: ABDOMINAL PAIN
     Dosage: 25 MG, QD
     Route: 048
     Dates: start: 20171222, end: 20171224
  6. ALGIDOL [Concomitant]
     Active Substance: ACETAMINOPHEN\ASCORBIC ACID\CODEINE
     Indication: UPPER RESPIRATORY TRACT INFECTION
     Dosage: 1 DF, QD
     Route: 048
     Dates: start: 20180219

REACTIONS (1)
  - Aplasia pure red cell [Recovering/Resolving]

NARRATIVE: CASE EVENT DATE: 20180226
